FAERS Safety Report 4918576-4 (Version None)
Quarter: 2006Q1

REPORT INFORMATION
  Report Type: 
  Country: None (occurrence: None)
  Receive Date: 20060217
  Receipt Date: 20060217
  Transmission Date: 20060701
  Serious: Yes (Hospitalization)
  Sender: FDA-Public Use
  Company Number: None

PATIENT
  Age: 57 Year
  Sex: Male
  Weight: 111.7 kg

DRUGS (1)
  1. WARFARIN SODIUM [Suspect]
     Dosage: 2.5 MG QPM PO [SEVERAL YEARS]
     Route: 048

REACTIONS (7)
  - ANAEMIA [None]
  - GASTRIC VARICES [None]
  - HAEMATOCHEZIA [None]
  - HAEMORRHOIDS [None]
  - INTERNATIONAL NORMALISED RATIO INCREASED [None]
  - PORTAL HYPERTENSIVE GASTROPATHY [None]
  - UPPER GASTROINTESTINAL HAEMORRHAGE [None]
